FAERS Safety Report 8314204-9 (Version None)
Quarter: 2012Q2

REPORT INFORMATION
  Report Type: 
  Country: None (occurrence: None)
  Receive Date: 20120426
  Receipt Date: 20120424
  Transmission Date: 20120825
  Serious: Yes (Death)
  Sender: FDA-Public Use
  Company Number: PHHY2012BR035357

PATIENT
  Sex: Male

DRUGS (1)
  1. DIOVAN [Suspect]
     Indication: DYSPNOEA
     Dosage: 2 TABLETS A DAY
     Dates: start: 20120101

REACTIONS (2)
  - CARDIAC ARREST [None]
  - RENAL IMPAIRMENT [None]
